FAERS Safety Report 7414872-X (Version None)
Quarter: 2011Q2

REPORT INFORMATION
  Report Type: 
  Country: None (occurrence: None)
  Receive Date: 20110414
  Receipt Date: 20110408
  Transmission Date: 20111010
  Serious: Yes (Death, Hospitalization)
  Sender: FDA-Public Use
  Company Number: BE-AMGEN LTD.-KDC441686

PATIENT
  Age: 61 Year
  Sex: Male
  Weight: 99.6 kg

DRUGS (24)
  1. PANTOMED [Concomitant]
     Indication: DYSPEPSIA
     Dosage: 20 MG, UNK
     Route: 048
     Dates: start: 20100909, end: 20101006
  2. AUGMENTIN [Concomitant]
     Indication: PNEUMONIA
  3. TAVANIC [Concomitant]
     Dosage: 500 MG, UNK
     Route: 048
     Dates: start: 20100909, end: 20100913
  4. VENOFER [Concomitant]
     Dosage: 200 MG, UNK
     Route: 042
     Dates: start: 20100907, end: 20100907
  5. SOLU-MEDROL [Concomitant]
     Dosage: 40 MG, UNK
     Route: 042
     Dates: start: 20100608, end: 20100921
  6. LITICAN [Concomitant]
     Indication: NAUSEA
     Route: 048
     Dates: start: 20100609, end: 20100810
  7. OXALIPLATIN [Concomitant]
     Indication: COLORECTAL CANCER
     Dosage: 85 MG/M2, Q2WK
     Route: 042
     Dates: start: 20100608, end: 20100921
  8. DUOVENT [Concomitant]
     Indication: PNEUMONIA
     Dosage: 4 ML, UNK
     Route: 055
     Dates: start: 20100824, end: 20100909
  9. DIFLUCAN [Concomitant]
     Indication: PNEUMONIA
     Dosage: 200 MG, UNK
     Route: 048
     Dates: start: 20100828, end: 20101006
  10. NOVABAN [Concomitant]
     Dosage: 5 MG, UNK
     Route: 042
     Dates: start: 20100608, end: 20100921
  11. MEDROL [Concomitant]
     Dosage: 32 MG, UNK
     Route: 048
     Dates: start: 20100906, end: 20101006
  12. AUGMENTIN [Concomitant]
     Indication: RESPIRATORY FAILURE
     Dosage: UNK
     Route: 042
     Dates: start: 20100803, end: 20101004
  13. ACTRAPID [Concomitant]
     Indication: HYPERGLYCAEMIA
     Dosage: UNK
     Route: 058
     Dates: start: 20100928, end: 20101003
  14. MINOCYCLINE [Concomitant]
     Dosage: 100 MG, UNK
     Route: 048
     Dates: start: 20100622, end: 20100825
  15. FOLINIC ACID [Concomitant]
     Dosage: 200 MG/M2, Q2WK
     Route: 042
     Dates: start: 20100608, end: 20100921
  16. DARBEPOETIN ALFA [Concomitant]
     Indication: HAEMOGLOBIN DECREASED
     Route: 058
     Dates: start: 20100907, end: 20100907
  17. SOLU-MEDROL [Concomitant]
     Dosage: UNK
     Route: 042
     Dates: start: 20100608, end: 20101006
  18. ROZEX [Concomitant]
     Indication: SKIN TOXICITY
     Dosage: UNK
     Route: 061
     Dates: start: 20100622, end: 20100825
  19. PANITUMUMAB [Suspect]
     Indication: COLORECTAL CANCER
     Dosage: UNK
     Dates: start: 20100608, end: 20100921
  20. FLUOROURACIL [Concomitant]
     Dosage: 2400 MG/M2, Q2WK
     Route: 042
     Dates: start: 20100608, end: 20100921
  21. LASIX [Concomitant]
     Dosage: 40 MG, UNK
     Route: 048
     Dates: start: 20100921, end: 20101006
  22. ATROVENT [Concomitant]
     Indication: DYSPNOEA
     Dosage: UNK
     Route: 055
     Dates: start: 20100924, end: 20101006
  23. TAZOCIN [Concomitant]
     Indication: PNEUMONIA
     Dosage: 4 G, UNK
     Route: 042
     Dates: start: 20100824, end: 20100905
  24. CHLORHEXIDINE GLUCONATE [Concomitant]
     Dosage: UNK
     Route: 062
     Dates: start: 20100803, end: 20100825

REACTIONS (1)
  - RESPIRATORY FAILURE [None]
